FAERS Safety Report 10235018 (Version 1)
Quarter: 2014Q2

REPORT INFORMATION
  Report Type: Spontaneous
  Country: US (occurrence: None)
  Receive Date: 20140612
  Receipt Date: 20140612
  Transmission Date: 20141212
  Serious: No
  Sender: FDA-Public Use
  Company Number: None

PATIENT
  Age: 78 Year
  Sex: Female
  Weight: 64.41 kg

DRUGS (1)
  1. SIMPONI [Suspect]
     Dates: start: 20140604, end: 20140610

REACTIONS (1)
  - Agitation [None]
